FAERS Safety Report 26081345 (Version 2)
Quarter: 2025Q4

REPORT INFORMATION
  Report Type: Spontaneous
  Country: EU (occurrence: EU)
  Receive Date: 20251124
  Receipt Date: 20251205
  Transmission Date: 20260118
  Serious: Yes (Hospitalization, Other)
  Sender: SANDOZ
  Company Number: AU-AstraZeneca-2023A164271

PATIENT
  Age: 74 Year
  Sex: Male
  Weight: 67 kg

DRUGS (77)
  1. CARBOPLATIN [Suspect]
     Active Substance: CARBOPLATIN
     Indication: Breast cancer
     Dosage: 4 EVERY THREE WEEKS
     Route: 042
     Dates: start: 20230807, end: 20230807
  2. CARBOPLATIN [Suspect]
     Active Substance: CARBOPLATIN
     Dosage: 4 EVERY THREE WEEKS
     Route: 042
     Dates: start: 20230825, end: 20230825
  3. CARBOPLATIN [Suspect]
     Active Substance: CARBOPLATIN
     Dosage: 5 EVERY THREE WEEKS
     Route: 042
     Dates: start: 20230623, end: 20230623
  4. CARBOPLATIN [Suspect]
     Active Substance: CARBOPLATIN
     Dosage: 5 EVERY THREE WEEKS
     Route: 042
     Dates: start: 20230714, end: 20230714
  5. DURVALUMAB [Suspect]
     Active Substance: DURVALUMAB
     Indication: Non-small cell lung cancer metastatic
     Dosage: UNK
     Route: 065
  6. PACLITAXEL [Suspect]
     Active Substance: PACLITAXEL
     Indication: Non-small cell lung cancer metastatic
     Dosage: 136 MG/M^2 136 MILLIGRAM/SQ. METER, Q3W
     Route: 042
     Dates: start: 20230623, end: 20230825
  7. PACLITAXEL [Suspect]
     Active Substance: PACLITAXEL
     Dosage: 141 MG/M^2 141 MILLIGRAM/SQ. METER, Q3W
     Route: 042
     Dates: start: 20230825, end: 20230825
  8. PACLITAXEL [Suspect]
     Active Substance: PACLITAXEL
     Dosage: 200 MG/M^2 200 MILLIGRAM/SQ. METER, Q3W
     Route: 042
     Dates: start: 20230623, end: 20230623
  9. PACLITAXEL [Suspect]
     Active Substance: PACLITAXEL
     Dosage: 200 MG/M^2 200 MILLIGRAM/SQ. METER, Q3W
     Route: 042
     Dates: start: 20230714, end: 20230714
  10. PEMBROLIZUMAB [Suspect]
     Active Substance: PEMBROLIZUMAB
     Indication: Non-small cell lung cancer metastatic
     Dosage: 200 MG 200 MILLIGRAM, Q3W
     Route: 042
     Dates: start: 20230714, end: 20230714
  11. PEMBROLIZUMAB [Suspect]
     Active Substance: PEMBROLIZUMAB
     Dosage: 200 MG 200 MILLIGRAM, Q3W
     Route: 042
     Dates: start: 20230623
  12. PEMBROLIZUMAB [Suspect]
     Active Substance: PEMBROLIZUMAB
     Dosage: 200 MG 200 MILLIGRAM, Q3W
     Route: 042
     Dates: start: 20230807, end: 20230807
  13. PEMBROLIZUMAB [Suspect]
     Active Substance: PEMBROLIZUMAB
     Dosage: 200 MG 200 MILLIGRAM, Q3W
     Route: 042
     Dates: start: 20230825, end: 20230825
  14. PEMBROLIZUMAB [Suspect]
     Active Substance: PEMBROLIZUMAB
     Dosage: 200 MG 200 MILLIGRAM, Q3W
     Route: 042
     Dates: start: 20230915, end: 20230915
  15. PEMBROLIZUMAB [Suspect]
     Active Substance: PEMBROLIZUMAB
     Dosage: 200 MG 200 MILLIGRAM, Q3W
     Route: 042
     Dates: start: 20231005, end: 20231005
  16. (6S)-5-methyltetrahydrofolate glucosamine;Acetylcarnitine;Amylase;Asco [Concomitant]
     Indication: Cough
     Dosage: 600 MG, QD
     Route: 065
     Dates: start: 2022
  17. Acemetacin;Cyanocobalamin;Prednisolone;Thiamine [Concomitant]
     Indication: Hypophysitis
     Dosage: 12.5 003 DAILY
     Route: 065
     Dates: start: 20230724, end: 20230726
  18. Acemetacin;Cyanocobalamin;Prednisolone;Thiamine [Concomitant]
     Indication: Hypophysitis
     Dosage: 6.25 003 DAILY
     Route: 065
     Dates: start: 20230727, end: 20230730
  19. Acetylcystein hexal [Concomitant]
     Indication: Cough
     Dosage: UNK
     Route: 065
     Dates: start: 20220615
  20. Achillea millefolium herb;Acorus calamus rhizome;Centaurea benedicta v [Concomitant]
     Indication: Atrial fibrillation
     Dosage: 1 MILLIGRAM, UNK, FREQUENCY: INT
     Route: 065
     Dates: start: 20230623
  21. Acid zoledronic accord [Concomitant]
     Indication: Hypercalcaemia
     Dosage: 4 MG
     Route: 065
     Dates: start: 20231018, end: 20231018
  22. ACLARUBICIN HYDROCHLORIDE [Concomitant]
     Active Substance: ACLARUBICIN HYDROCHLORIDE
     Indication: Product used for unknown indication
     Dosage: 875 003 THREE TIMES A DAY
     Route: 065
     Dates: start: 20230818, end: 20230824
  23. Aldomin [Concomitant]
     Indication: Insomnia
     Dosage: 80 003 DAILY
     Route: 065
     Dates: start: 20230814
  24. Alfaepoetina blausiegel [Concomitant]
     Dosage: 10000 ONCE A WEEK
     Route: 065
     Dates: start: 20230624, end: 20230713
  25. Alfaepoetina blausiegel [Concomitant]
     Indication: Product used for unknown indication
     Dosage: 20000 ONCE A WEEK
     Route: 065
     Dates: start: 20230714
  26. Alisma plantago-aquatica subsp. orientale;Carthamus tinctorius;Chicken [Concomitant]
     Indication: Anaemia
     Dosage: 20 003 DAILY
     Route: 065
     Dates: start: 20230803, end: 20230813
  27. Alisma plantago-aquatica subsp. orientale;Carthamus tinctorius;Chicken [Concomitant]
     Dosage: 40 003 DAILY
     Route: 065
     Dates: start: 20230716, end: 20230718
  28. Alisma plantago-aquatica subsp. orientale;Carthamus tinctorius;Chicken [Concomitant]
     Dosage: 40 003 DAILY
     Route: 065
     Dates: start: 20230814
  29. AMOXICILLIN [Concomitant]
     Active Substance: AMOXICILLIN
     Indication: Product used for unknown indication
     Dosage: 2625 MG 875.00 MG 3 TIMES PER DAY
     Route: 048
     Dates: start: 20230818, end: 20230824
  30. AMOXICILLIN [Concomitant]
     Active Substance: AMOXICILLIN
     Dosage: 875.00 MG 3 TIMES PER DAY
     Route: 048
     Dates: start: 20230818, end: 20230824
  31. Amykal [Concomitant]
     Indication: Body tinea
     Dosage: 250 MG, QD
     Route: 065
     Dates: start: 20230516, end: 20230623
  32. ATORVASTATIN [Concomitant]
     Active Substance: ATORVASTATIN
     Indication: Cerebrovascular accident
     Dosage: 20 MG
     Route: 048
     Dates: start: 20230912, end: 20230919
  33. AZITHROMYCIN [Concomitant]
     Active Substance: AZITHROMYCIN
     Indication: C-reactive protein increased
     Dosage: 500 003 DAILY
     Route: 065
     Dates: start: 20230928, end: 20230930
  34. Ceolat [Concomitant]
     Indication: Diarrhoea
     Dosage: 1 MILLIGRAM, UNK
     Route: 065
     Dates: start: 20230519
  35. Ceolat [Concomitant]
     Indication: Diarrhoea
     Dosage: UNK
     Route: 065
     Dates: start: 20230623
  36. Dermavate s [Concomitant]
     Indication: Hypophysitis
     Dosage: AILY 1 DAILY
     Route: 065
     Dates: start: 20230817, end: 20230824
  37. CLOBETASOL [Concomitant]
     Active Substance: CLOBETASOL
     Indication: Rash
     Dosage: 1.00 OTHER APPLICATION TWICE PER DAY
     Route: 061
     Dates: start: 20230809, end: 20230816
  38. CLOBETASOL [Concomitant]
     Active Substance: CLOBETASOL
     Dosage: 1.00 OTHER APPLICATION DAILY
     Route: 061
     Dates: start: 20230817, end: 20230824
  39. DESLORATADINE [Concomitant]
     Active Substance: DESLORATADINE
     Indication: Product used for unknown indication
     Dosage: 5 MG 5 MILLIGRAM TWICE PER DAY
     Route: 048
     Dates: start: 20230809, end: 20231018
  40. DEXAMETHASONE [Concomitant]
     Active Substance: DEXAMETHASONE
     Indication: Premedication
     Dosage: 20 MILLIGRAM EVERY 3 WEEKS
     Route: 042
     Dates: start: 20230623, end: 20230825
  41. DIPHENHYDRAMINE HYDROCHLORIDE [Concomitant]
     Active Substance: DIPHENHYDRAMINE HYDROCHLORIDE
     Indication: Depression
     Dosage: 30 MG 30 MILLIGRAM EVERY 3 WEEKS
     Route: 042
     Dates: start: 20230623, end: 20230825
  42. Dominal [Concomitant]
     Indication: Insomnia
     Dosage: 40 003 DAILY
     Route: 065
     Dates: start: 20230721, end: 20230813
  43. ERYTHROPOIETIN [Concomitant]
     Active Substance: ERYTHROPOIETIN
     Dosage: 10000.00 OTHER IE EVERY WEEK
     Route: 058
     Dates: start: 20230624, end: 20230713
  44. ERYTHROPOIETIN [Concomitant]
     Active Substance: ERYTHROPOIETIN
     Indication: Anaemia
     Dosage: 20000.00 OTHER IE EVERY WEEK
     Route: 058
     Dates: start: 20230614, end: 20231019
  45. HUMAN RED BLOOD CELL [Concomitant]
     Active Substance: HUMAN RED BLOOD CELL
     Indication: Product used for unknown indication
     Dosage: O 2 ONCE/SINGLE ADMINISTRATION
     Route: 065
     Dates: start: 20230714, end: 20230714
  46. HUMAN RED BLOOD CELL [Concomitant]
     Active Substance: HUMAN RED BLOOD CELL
     Dosage: O 2 ONCE/SINGLE ADMINISTRATION
     Route: 065
     Dates: start: 20230623
  47. FOLIC ACID [Concomitant]
     Active Substance: FOLIC ACID
     Indication: Prophylaxis
     Dosage: 5 MG 5 MG, QD (DAILY)
     Route: 048
     Dates: start: 20230525
  48. HYALURONIDASE [Concomitant]
     Active Substance: HYALURONIDASE
     Indication: Extravasation
     Dosage: 150.00 OTHER IE ONCE
     Route: 058
     Dates: start: 20230714, end: 20230714
  49. HYDROCORTONE [Concomitant]
     Active Substance: HYDROCORTISONE
     Indication: Product used for unknown indication
     Dosage: 30 MG 30 MILLIGRAM
     Route: 048
     Dates: start: 20230731, end: 20230919
  50. IMODIUM [Concomitant]
     Active Substance: LOPERAMIDE HYDROCHLORIDE
     Indication: Diarrhoea
     Dosage: 2 MILLIGRAM, UNK, FREQUENCY: INT
     Route: 065
     Dates: start: 20230623
  51. KYTRIL [Concomitant]
     Active Substance: GRANISETRON HYDROCHLORIDE
     Indication: Nausea
     Dosage: 2 MILLIGRAM, UNK, FREQUENCY: INT
     Route: 065
     Dates: start: 20230623
  52. LASIX [Concomitant]
     Active Substance: FUROSEMIDE
     Dosage: 20 MG 20 MILLIGRAM, QD
     Route: 048
     Dates: start: 20230803, end: 20230813
  53. LASIX [Concomitant]
     Active Substance: FUROSEMIDE
     Indication: Fluid retention
     Dosage: 40 MILLIGRAM, QD
     Route: 048
     Dates: start: 20230714, end: 20250718
  54. LASIX [Concomitant]
     Active Substance: FUROSEMIDE
     Dosage: 40 MILLIGRAM, QD
     Route: 048
     Dates: start: 20230803, end: 20230813
  55. EDOXABAN TOSYLATE [Concomitant]
     Active Substance: EDOXABAN TOSYLATE
     Indication: Atrial fibrillation
     Dosage: 60 MG, QD
     Route: 065
     Dates: start: 20230516
  56. LIPEGFILGRASTIM [Concomitant]
     Active Substance: LIPEGFILGRASTIM
     Indication: Chemotherapy
     Dosage: 6.00 MG EVERY 3 WEEKS
     Route: 058
     Dates: start: 20230723
  57. MIRTAZAPINE [Concomitant]
     Active Substance: MIRTAZAPINE
     Indication: Depression
     Dosage: 30 MG, QD
     Route: 048
     Dates: start: 20230525
  58. NEBIVOLOL [Concomitant]
     Active Substance: NEBIVOLOL
     Indication: Atrial fibrillation
     Dosage: 2.5 MG, QD
     Route: 048
     Dates: start: 20230519
  59. NETUPITANT [Concomitant]
     Active Substance: NETUPITANT
     Dosage: 300 MG, QW
     Route: 065
     Dates: start: 20230623
  60. NETUPITANT [Concomitant]
     Active Substance: NETUPITANT
     Indication: Premedication
     Dosage: 300 MILLIGRAM, UNK
     Route: 065
     Dates: start: 20230623, end: 20230825
  61. NETUPITANT\PALONOSETRON [Concomitant]
     Active Substance: NETUPITANT\PALONOSETRON
     Indication: Premedication
     Dosage: UNK
     Route: 065
     Dates: start: 20230623
  62. Novalgin [Concomitant]
     Indication: Product used for unknown indication
     Dosage: 500 MG
     Route: 048
     Dates: start: 20230714
  63. PANTOPRAZOLE SODIUM [Concomitant]
     Active Substance: PANTOPRAZOLE SODIUM
     Indication: Dyspepsia
     Dosage: 40 MG, QD
     Route: 048
     Dates: start: 20230513
  64. PREDNISOLONE [Concomitant]
     Active Substance: PREDNISOLONE
     Dosage: 12.5 MG
     Route: 065
     Dates: start: 20230724, end: 20230726
  65. PREDNISOLONE [Concomitant]
     Active Substance: PREDNISOLONE
     Indication: Hypophysitis
     Dosage: 18.75 MG
     Route: 065
     Dates: start: 20230716, end: 20230723
  66. PREDNISOLONE [Concomitant]
     Active Substance: PREDNISOLONE
     Dosage: 6.25 MG
     Route: 065
     Dates: start: 20230727, end: 20230730
  67. Resource 2.0+fibre [Concomitant]
     Indication: Supplementation therapy
     Dosage: 400 ML, QD
     Route: 065
     Dates: start: 20230714
  68. Resource protein [Concomitant]
     Indication: Nutritional supplementation
     Dosage: 200 ML 200 ML, QD (DAILY)
     Route: 048
     Dates: start: 20230704
  69. Solevita [Concomitant]
     Indication: Vitamin D deficiency
     Dosage: 30 031 DAILY
     Route: 065
     Dates: start: 20230715
  70. Solevita [Concomitant]
     Dosage: 30 031 DAILY
     Route: 065
     Dates: start: 20230624, end: 20230713
  71. TERBINAFINE HYDROCHLORIDE [Concomitant]
     Active Substance: TERBINAFINE HYDROCHLORIDE
     Indication: Body tinea
     Dosage: 250 MG 250 MILLIGRAM
     Route: 048
     Dates: start: 20230516, end: 20230623
  72. TIMOLOL [Concomitant]
     Active Substance: TIMOLOL
     Indication: Hypophysitis
     Dosage: 2 MILLIGRAM, UNK
     Route: 065
     Dates: start: 20230714, end: 20230714
  73. Tin fluoride [Concomitant]
     Dosage: 4 MILLIGRAM
     Route: 065
     Dates: start: 20231018, end: 20231018
  74. Tin fluoride [Concomitant]
     Indication: Product used for unknown indication
     Dosage: 45 ML 15.00 ML 3 TIMES PER DAY
  75. VITAMIN D3 [Concomitant]
     Active Substance: CHOLECALCIFEROL
     Indication: Vitamin D deficiency
     Dosage: 30.00 GTT DAILY
     Route: 048
     Dates: start: 20230715, end: 20231019
  76. FILGRASTIM [Concomitant]
     Active Substance: FILGRASTIM
     Indication: Neutropenia
     Dosage: 30.00 OTHER MIO E
     Route: 058
     Dates: start: 20230726, end: 20230728
  77. ZOLEDRONIC ACID [Concomitant]
     Active Substance: ZOLEDRONIC ACID
     Indication: Hypercalcaemia
     Dosage: 4 MILLIGRAM
     Route: 065
     Dates: start: 20231018, end: 20231018

REACTIONS (2)
  - Hypophysitis [Not Recovered/Not Resolved]
  - Extravasation [Recovered/Resolved]
